FAERS Safety Report 16851411 (Version 6)
Quarter: 2020Q1

REPORT INFORMATION
  Report Type: Spontaneous
  Country: US (occurrence: US)
  Receive Date: 20190925
  Receipt Date: 20200306
  Transmission Date: 20200409
  Serious: No
  Sender: FDA-Public Use
  Company Number: US-PFIZER INC-2019412568

PATIENT
  Age: 88 Year
  Sex: Female
  Weight: 63 kg

DRUGS (5)
  1. PREMARIN [Suspect]
     Active Substance: ESTROGENS, CONJUGATED
     Indication: BLOOD BLISTER
     Dosage: UNK, AS NEEDED
     Route: 067
  2. PREMARIN [Suspect]
     Active Substance: ESTROGENS, CONJUGATED
     Indication: IRRITABILITY
  3. PREMARIN [Suspect]
     Active Substance: ESTROGENS, CONJUGATED
     Indication: VULVOVAGINAL PRURITUS
     Dosage: UNK (0.625 MG/G USES IT SPARINGLY, 2-3 TIMES PER WEEK)
  4. PREMARIN [Suspect]
     Active Substance: ESTROGENS, CONJUGATED
     Indication: VULVOVAGINAL ERYTHEMA
     Dosage: UNK, ALTERNATE DAY (2.065 MG/30 GM PACKAGE OF 1; EVERY OTHER DAY)
  5. PREMARIN [Suspect]
     Active Substance: ESTROGENS, CONJUGATED
     Indication: VULVOVAGINAL DRYNESS
     Dosage: 0.625 MG/G, ALTERNATE DAY ( EVERY OTHER DAY)
     Route: 067

REACTIONS (10)
  - Expired product administered [Unknown]
  - Weight fluctuation [Unknown]
  - Dizziness [Unknown]
  - Face injury [Unknown]
  - Drug ineffective [Unknown]
  - Swelling face [Unknown]
  - Fall [Unknown]
  - Impaired driving ability [Unknown]
  - Intentional product use issue [Unknown]
  - Off label use [Unknown]

NARRATIVE: CASE EVENT DATE: 20190501
